FAERS Safety Report 5494680-X (Version None)
Quarter: 2007Q4

REPORT INFORMATION
  Report Type: 
  Country: None (occurrence: None)
  Receive Date: 20071015
  Receipt Date: 20070828
  Transmission Date: 20080405
  Serious: No
  Sender: FDA-Public Use
  Company Number: 2007SP003020

PATIENT
  Age: 64 Year
  Sex: Male
  Weight: 77.1115 kg

DRUGS (5)
  1. LUNESTA [Suspect]
     Indication: INSOMNIA
     Dosage: 3 MG; HS; ORAL
     Route: 048
     Dates: start: 20070814, end: 20070816
  2. VICODIN [Concomitant]
  3. NEURONTIN [Concomitant]
  4. METFORMIN HCL [Concomitant]
  5. SIMVASTATIN [Concomitant]

REACTIONS (3)
  - INCREASED BRONCHIAL SECRETION [None]
  - ORAL PAIN [None]
  - STOMATITIS [None]
